FAERS Safety Report 20853989 (Version 1)
Quarter: 2022Q2

REPORT INFORMATION
  Report Type: Spontaneous
  Country: DE (occurrence: None)
  Receive Date: 20220520
  Receipt Date: 20220520
  Transmission Date: 20220721
  Serious: Yes (Other)
  Sender: FDA-Public Use
  Company Number: 2022A189664

PATIENT
  Sex: Female

DRUGS (1)
  1. SYMBICORT [Suspect]
     Active Substance: BUDESONIDE\FORMOTEROL FUMARATE DIHYDRATE
     Indication: Asthma
     Dosage: 160.0 / 4.5
     Route: 055
     Dates: start: 2015

REACTIONS (4)
  - Skin haemorrhage [Unknown]
  - Depression [Unknown]
  - Skin atrophy [Unknown]
  - Skin fissures [Unknown]

NARRATIVE: CASE EVENT DATE: 20170101
